FAERS Safety Report 11880120 (Version 1)
Quarter: 2015Q4

REPORT INFORMATION
  Report Type: Spontaneous
  Country: FR (occurrence: FR)
  Receive Date: 20151230
  Receipt Date: 20151230
  Transmission Date: 20160305
  Serious: Yes (Hospitalization)
  Sender: FDA-Public Use
  Company Number: FR-FRESENIUS KABI-FK201506906

PATIENT
  Age: 51 Year
  Sex: Female

DRUGS (3)
  1. IRINOTECAN 20 MG/ML CONCENTRATE FOR SOLUTION FOR INFUSION [Suspect]
     Active Substance: IRINOTECAN
     Indication: ADENOCARCINOMA OF COLON
     Route: 042
     Dates: start: 20150116, end: 20150116
  2. ERBITUX [Suspect]
     Active Substance: CETUXIMAB
     Indication: ADENOCARCINOMA OF COLON
     Route: 042
     Dates: start: 20150116, end: 20150116
  3. SODIUM LEVOFOLINATE [Suspect]
     Active Substance: LEVOLEUCOVORIN DISODIUM
     Indication: ADENOCARCINOMA OF COLON
     Route: 042
     Dates: start: 20150116, end: 20150116

REACTIONS (2)
  - Formication [Recovered/Resolved]
  - Muscular weakness [Recovered/Resolved]

NARRATIVE: CASE EVENT DATE: 20150116
